FAERS Safety Report 7863725-1 (Version None)
Quarter: 2011Q4

REPORT INFORMATION
  Report Type: 
  Country: None (occurrence: None)
  Receive Date: 20111027
  Receipt Date: 20101124
  Transmission Date: 20120403
  Serious: No
  Sender: FDA-Public Use
  Company Number: US-AMGEN-USASP2010001817

PATIENT
  Age: 74 Year
  Sex: Female
  Weight: 62.8 kg

DRUGS (1)
  1. ENBREL [Suspect]
     Indication: RHEUMATOID ARTHRITIS
     Dosage: 50 MG, QWK
     Route: 058
     Dates: start: 20040301

REACTIONS (4)
  - DENTAL CARIES [None]
  - ORAL INFECTION [None]
  - GINGIVAL PAIN [None]
  - MALAISE [None]
